FAERS Safety Report 10189333 (Version 2)
Quarter: 2014Q2

REPORT INFORMATION
  Report Type: Spontaneous
  Country: IT (occurrence: IT)
  Receive Date: 20140522
  Receipt Date: 20140522
  Transmission Date: 20141212
  Serious: Yes (Hospitalization, Other)
  Sender: FDA-Public Use
  Company Number: IT-TEVA-474596ISR

PATIENT
  Age: 67 Year
  Sex: Female
  Weight: 67 kg

DRUGS (2)
  1. CARBOPLATINO TEVA [Suspect]
     Dosage: 250 MILLIGRAM DAILY;
     Route: 042
     Dates: start: 20131202
  2. PACLITAXEL MYLAN GENERICS [Suspect]
     Indication: OVARIAN CANCER
     Dosage: 175 MG/M2 DAILY;
     Route: 042
     Dates: start: 20131202, end: 20131202

REACTIONS (6)
  - Neutropenia [Recovering/Resolving]
  - Asthenia [Recovering/Resolving]
  - Electrolyte imbalance [Recovering/Resolving]
  - Nausea [Recovering/Resolving]
  - Vomiting [Recovering/Resolving]
  - Stomatitis [Recovering/Resolving]
